FAERS Safety Report 25908570 (Version 1)
Quarter: 2025Q4

REPORT INFORMATION
  Report Type: Spontaneous
  Country: US (occurrence: US)
  Receive Date: 20251010
  Receipt Date: 20251010
  Transmission Date: 20260118
  Serious: Yes (Hospitalization)
  Sender: MERCK SHARP & DOHME LLC
  Company Number: US-009507513-2335241

PATIENT
  Age: 65 Year
  Sex: Female

DRUGS (3)
  1. PEMBROLIZUMAB [Suspect]
     Active Substance: PEMBROLIZUMAB
     Indication: Endometrial adenocarcinoma
     Dosage: 200 MG EVERY 3 WEEKS
     Route: 065
  2. CARBOPLATIN [Concomitant]
     Active Substance: CARBOPLATIN
     Indication: Endometrial adenocarcinoma
     Dosage: AREA UNDER THE CURVE (AUC) 5 EVERY 3 WEEKS
  3. PACLITAXEL [Concomitant]
     Active Substance: PACLITAXEL
     Indication: Endometrial adenocarcinoma
     Dosage: 175 MG/M2 EVERY 3 WEEKS

REACTIONS (1)
  - Capillary leak syndrome [Recovering/Resolving]
